FAERS Safety Report 5142571-6 (Version None)
Quarter: 2006Q4

REPORT INFORMATION
  Report Type: 
  Country: None (occurrence: None)
  Receive Date: 20061027
  Receipt Date: 20061004
  Transmission Date: 20070319
  Serious: Yes (Hospitalization, Other)
  Sender: FDA-Public Use
  Company Number: USA0506100218

PATIENT
  Age: 45 Year
  Sex: Male
  Weight: 131.5 kg

DRUGS (12)
  1. ZYPREXA [Suspect]
     Indication: ROAD TRAFFIC ACCIDENT
     Dosage: 10 MG, 2/D,
     Dates: start: 20010101
  2. LACTULOSE [Concomitant]
  3. K-DUR 10 [Concomitant]
  4. FERROUS SULFATE TAB [Concomitant]
  5. ATENOLOL [Concomitant]
  6. MULTIVITAMINS (ASCORBIC ACID, ERGOCALCIFEROL, FOLIC ACID, NICOTINAMIDE [Concomitant]
  7. AXID [Concomitant]
  8. LASIX [Concomitant]
  9. COUMADIN [Concomitant]
  10. KLONOPIN [Concomitant]
  11. VICODIN [Concomitant]
  12. PAXIL [Concomitant]

REACTIONS (18)
  - AMNESIA [None]
  - ANAEMIA [None]
  - BLOOD CHOLESTEROL INCREASED [None]
  - BLOOD TRIGLYCERIDES INCREASED [None]
  - DIABETES MELLITUS NON-INSULIN-DEPENDENT [None]
  - DIARRHOEA [None]
  - DYSPHAGIA [None]
  - FEELING ABNORMAL [None]
  - GASTROINTESTINAL HAEMORRHAGE [None]
  - HEPATIC ENCEPHALOPATHY [None]
  - INCREASED APPETITE [None]
  - IRON DEFICIENCY [None]
  - JOINT INJURY [None]
  - LIVER FUNCTION TEST ABNORMAL [None]
  - SOMNOLENCE [None]
  - URINE ABNORMALITY [None]
  - VARICES OESOPHAGEAL [None]
  - WEIGHT INCREASED [None]
